FAERS Safety Report 18871651 (Version 1)
Quarter: 2021Q1

REPORT INFORMATION
  Report Type: Spontaneous
  Country: US (occurrence: US)
  Receive Date: 20210210
  Receipt Date: 20210210
  Transmission Date: 20210420
  Serious: Yes (Other)
  Sender: FDA-Public Use
  Company Number: None

PATIENT
  Age: 62 Year
  Sex: Female
  Weight: 101.7 kg

DRUGS (8)
  1. BAMLANIVIMAB. [Suspect]
     Active Substance: BAMLANIVIMAB
     Indication: COVID-19
     Dates: start: 20210209, end: 20210209
  2. VIT C GUMMIES [Concomitant]
  3. TRULICITY [Concomitant]
     Active Substance: DULAGLUTIDE
  4. CENTRUM FOR WOMEN [Concomitant]
     Active Substance: VITAMINS
  5. TROUJEO [Concomitant]
  6. HUMALOG [Concomitant]
     Active Substance: INSULIN LISPRO
  7. VIT D [Concomitant]
     Active Substance: VITAMIN D NOS
  8. ZINC. [Concomitant]
     Active Substance: ZINC

REACTIONS (2)
  - Rash erythematous [None]
  - Rash [None]

NARRATIVE: CASE EVENT DATE: 20210210
